FAERS Safety Report 22148174 (Version 1)
Quarter: 2023Q1

REPORT INFORMATION
  Report Type: Spontaneous
  Country: US (occurrence: US)
  Receive Date: 20230328
  Receipt Date: 20230328
  Transmission Date: 20230418
  Serious: No
  Sender: FDA-Public Use
  Company Number: US-MYLANLABS-2023M1028921

PATIENT
  Sex: Female
  Weight: 127.01 kg

DRUGS (1)
  1. SEMGLEE (INSULIN GLARGINE-YFGN) [Suspect]
     Active Substance: INSULIN GLARGINE-YFGN
     Indication: Type 2 diabetes mellitus
     Dosage: 60 INTERNATIONAL UNIT, QD
     Route: 058

REACTIONS (3)
  - Product storage error [Unknown]
  - Device dispensing error [Unknown]
  - Device mechanical issue [Unknown]
